FAERS Safety Report 4607501-1 (Version None)
Quarter: 2005Q1

REPORT INFORMATION
  Report Type: 
  Country: None (occurrence: None)
  Receive Date: 20050314
  Receipt Date: 20050301
  Transmission Date: 20050727
  Serious: Yes (Other)
  Sender: FDA-Public Use
  Company Number: GB-JNJFOC-20050300716

PATIENT
  Age: 61 Year
  Sex: Female
  Weight: 65 kg

DRUGS (5)
  1. SPORANOX [Suspect]
     Route: 049
     Dates: start: 20050208, end: 20050215
  2. FLUTICASONE PROPIONATE [Concomitant]
     Indication: HYPERSENSITIVITY
     Route: 045
  3. ALBUTEROL [Concomitant]
     Indication: ASTHMA
     Dosage: 100 MCG 2 DOSES AS NECESSARY
     Route: 055
  4. BECLOMETHASONE [Concomitant]
     Indication: ASTHMA
     Dosage: 100MCG 2DOSES AS NECESSARY
     Route: 055
  5. IBUPROFEN [Concomitant]
     Dosage: 400 MG TDS PRN

REACTIONS (4)
  - ASTHMA [None]
  - METRORRHAGIA [None]
  - PRURITUS [None]
  - WEIGHT INCREASED [None]
